FAERS Safety Report 13981479 (Version 1)
Quarter: 2017Q3

REPORT INFORMATION
  Report Type: Spontaneous
  Country: US (occurrence: US)
  Receive Date: 20170916
  Receipt Date: 20170916
  Transmission Date: 20171128
  Serious: Yes (Disabling)
  Sender: FDA-Public Use
  Company Number: None

PATIENT
  Age: 45 Year
  Sex: Male
  Weight: 69.75 kg

DRUGS (1)
  1. OMEPRAZOLE. [Suspect]
     Active Substance: OMEPRAZOLE
     Indication: GASTROOESOPHAGEAL REFLUX DISEASE
     Dosage: ?          QUANTITY:1 CAPSULE(S); AT BEDTIME ORAL?
     Route: 048

REACTIONS (13)
  - Palpitations [None]
  - Migraine [None]
  - Pollakiuria [None]
  - Sleep apnoea syndrome [None]
  - Muscle spasms [None]
  - Irritable bowel syndrome [None]
  - Flatulence [None]
  - Gastrointestinal pain [None]
  - Abdominal discomfort [None]
  - Micturition urgency [None]
  - Muscle twitching [None]
  - Pain in extremity [None]
  - Bladder irritation [None]

NARRATIVE: CASE EVENT DATE: 20160901
